FAERS Safety Report 7208559-6 (Version None)
Quarter: 2010Q4

REPORT INFORMATION
  Report Type: 
  Country: None (occurrence: None)
  Receive Date: 20101230
  Receipt Date: 20101230
  Transmission Date: 20110411
  Serious: No
  Sender: FDA-Public Use
  Company Number: None

PATIENT
  Sex: Male
  Weight: 83.9154 kg

DRUGS (1)
  1. NAFCILLIN 10 GM VIAL NOVAPLUS [Suspect]
     Indication: INFECTION
     Dosage: 2 GM Q6H IV
     Route: 042
     Dates: start: 20101102, end: 20101208

REACTIONS (2)
  - EOSINOPHIL COUNT INCREASED [None]
  - HYPERSENSITIVITY [None]
